FAERS Safety Report 7751375-7 (Version None)
Quarter: 2011Q3

REPORT INFORMATION
  Report Type: 
  Country: None (occurrence: None)
  Receive Date: 20110914
  Receipt Date: 20110120
  Transmission Date: 20111222
  Serious: No
  Sender: FDA-Public Use
  Company Number: US-BAYER-2011-007944

PATIENT
  Age: 56 Year
  Sex: Female
  Weight: 63.492 kg

DRUGS (1)
  1. MAGNEVIST [Suspect]
     Indication: NUCLEAR MAGNETIC RESONANCE IMAGING
     Dosage: 13 CC LT. A.C VEIN BY HAND, LINE FLUSHED
     Route: 042
     Dates: start: 20110121, end: 20110121

REACTIONS (2)
  - NAUSEA [None]
  - COUGH [None]
